FAERS Safety Report 18000377 (Version 1)
Quarter: 2020Q3

REPORT INFORMATION
  Report Type: Spontaneous
  Country: US (occurrence: US)
  Receive Date: 20200709
  Receipt Date: 20200709
  Transmission Date: 20201103
  Serious: No
  Sender: FDA-Public Use
  Company Number: None

PATIENT
  Age: 38 Year
  Sex: Female
  Weight: 51.75 kg

DRUGS (6)
  1. DULOXETINE. [Suspect]
     Active Substance: DULOXETINE
     Indication: ANXIETY
     Route: 048
     Dates: start: 20191101
  2. RESOUVASTATIN [Concomitant]
  3. MULTIVITAMIN [Concomitant]
     Active Substance: VITAMINS
  4. DULOXETINE. [Suspect]
     Active Substance: DULOXETINE
     Indication: DEPRESSION
     Route: 048
     Dates: start: 20191101
  5. DULOXETINE. [Concomitant]
     Active Substance: DULOXETINE
  6. PRIOBIOTICS [Concomitant]

REACTIONS (8)
  - Irritability [None]
  - Salivary hypersecretion [None]
  - Feeling of despair [None]
  - Withdrawal syndrome [None]
  - Dizziness [None]
  - Chest discomfort [None]
  - Nausea [None]
  - Crying [None]
